FAERS Safety Report 8913187 (Version 1)
Quarter: 2012Q4

REPORT INFORMATION
  Report Type: 
  Country: BR (occurrence: BR)
  Receive Date: 20121119
  Receipt Date: 20121119
  Transmission Date: 20130627
  Serious: Yes (Other)
  Sender: FDA-Public Use
  Company Number: BR-AMGEN-BRASP2012064955

PATIENT
  Age: 68 Year
  Sex: Female
  Weight: 78 kg

DRUGS (6)
  1. ENBREL [Suspect]
     Indication: RHEUMATOID ARTHRITIS
     Dosage: 50 mg, once weekly
     Route: 058
     Dates: start: 20120920
  2. METHOTREXATE SODIUM [Suspect]
     Indication: OSTEOARTHRITIS
     Dosage: 25 mg 4 tablets, once a week
  3. LIPLESS [Concomitant]
     Dosage: 100 mg, 1x/day
  4. OMEPRAZOLE [Concomitant]
     Dosage: 20 mg, 1x/day
  5. MODURETIC [Concomitant]
     Dosage: 2.5 mg, 1x/day
  6. ENALAPRIL [Concomitant]
     Dosage: 10 mg, 1x/day

REACTIONS (8)
  - Rheumatoid arthritis [Unknown]
  - Wrong technique in drug usage process [Unknown]
  - Scratch [Unknown]
  - Pruritus [Unknown]
  - Muscle spasms [Unknown]
  - Injection site warmth [Unknown]
  - Injection site erythema [Unknown]
  - Injection site pruritus [Unknown]
